FAERS Safety Report 9282567 (Version 2)
Quarter: 2013Q2

REPORT INFORMATION
  Report Type: Spontaneous
  Country: US (occurrence: US)
  Receive Date: 20130510
  Receipt Date: 20130516
  Transmission Date: 20140414
  Serious: Yes (Hospitalization)
  Sender: FDA-Public Use
  Company Number: US-BAYER-2013-057606

PATIENT
  Age: 40 Year
  Sex: Female
  Weight: 112.93 kg

DRUGS (4)
  1. YAZ [Suspect]
     Dosage: UNK
     Dates: start: 2005, end: 2007
  2. YASMIN [Suspect]
     Dosage: UNK
     Dates: start: 2005, end: 2007
  3. OCELLA [Suspect]
     Dosage: UNK
     Dates: start: 2005, end: 2007
  4. CIPROFLOXACIN HCL [Concomitant]
     Dosage: 250 MG, UNK
     Route: 048

REACTIONS (10)
  - Pulmonary embolism [None]
  - Pulmonary embolism [None]
  - Deep vein thrombosis [None]
  - Abdominal pain [None]
  - Injury [None]
  - Pain [None]
  - General physical health deterioration [None]
  - Anxiety [None]
  - Pain [None]
  - Emotional distress [None]
